FAERS Safety Report 12530716 (Version 1)
Quarter: 2016Q3

REPORT INFORMATION
  Report Type: Spontaneous
  Country: US (occurrence: US)
  Receive Date: 20160706
  Receipt Date: 20160706
  Transmission Date: 20161109
  Serious: No
  Sender: FDA-Public Use
  Company Number: US-AMGEN-USASP2016085561

PATIENT
  Age: 57 Year
  Sex: Female

DRUGS (1)
  1. ENBREL [Suspect]
     Active Substance: ETANERCEPT
     Indication: RHEUMATOID ARTHRITIS
     Dosage: UNK, UNK, QWK
     Route: 065
     Dates: start: 20160503

REACTIONS (6)
  - Lymphadenopathy [Unknown]
  - Headache [Not Recovered/Not Resolved]
  - Injection site rash [Unknown]
  - Dyskinesia [Unknown]
  - Swelling face [Unknown]
  - Wrong technique in product usage process [Unknown]

NARRATIVE: CASE EVENT DATE: 2016
